FAERS Safety Report 8860006 (Version 1)
Quarter: 2012Q4

REPORT INFORMATION
  Report Type: 
  Country: US (occurrence: US)
  Receive Date: 20121025
  Receipt Date: 20121025
  Transmission Date: 20130627
  Serious: Yes (Other)
  Sender: FDA-Public Use
  Company Number: US-BAYER-2012-109798

PATIENT
  Sex: Female

DRUGS (2)
  1. MIRENA [Suspect]
     Dosage: 20 ?g/d, CONT
     Route: 015
     Dates: start: 2006, end: 2011
  2. MIRENA [Suspect]
     Dosage: 20 ?g/d, CONT
     Route: 015
     Dates: start: 201105, end: 20120928

REACTIONS (3)
  - Amenorrhoea [None]
  - Menorrhagia [None]
  - Dysmenorrhoea [None]
